FAERS Safety Report 9140868 (Version 1)
Quarter: 2013Q1

REPORT INFORMATION
  Report Type: Spontaneous
  Country: US (occurrence: US)
  Receive Date: 20130305
  Receipt Date: 20130305
  Transmission Date: 20140127
  Serious: No
  Sender: FDA-Public Use
  Company Number: US-BAYER-2013-025015

PATIENT
  Age: 63 Year
  Sex: Female

DRUGS (1)
  1. FINACEA [Suspect]

REACTIONS (2)
  - Burning sensation [None]
  - Pain [None]
